FAERS Safety Report 7250454-0 (Version None)
Quarter: 2011Q1

REPORT INFORMATION
  Report Type: 
  Country: None (occurrence: None)
  Receive Date: 20110121
  Receipt Date: 20110121
  Transmission Date: 20110831
  Serious: No
  Sender: FDA-Public Use
  Company Number: None

PATIENT
  Age: 38 Year
  Sex: Female
  Weight: 83 kg

DRUGS (1)
  1. HEPARIN [Suspect]
     Indication: RASH
     Dosage: 5000 UNITS -1ML- EVERY 12 HOURS SQ
     Dates: start: 20110108, end: 20110117

REACTIONS (2)
  - RASH [None]
  - PRODUCT QUALITY ISSUE [None]
